FAERS Safety Report 14928406 (Version 1)
Quarter: 2018Q2

REPORT INFORMATION
  Report Type: Spontaneous
  Country: US (occurrence: US)
  Receive Date: 20180523
  Receipt Date: 20180523
  Transmission Date: 20180711
  Serious: No
  Sender: FDA-Public Use
  Company Number: US-JNJFOC-20180521069

PATIENT
  Sex: Female

DRUGS (13)
  1. INVEGA [Suspect]
     Active Substance: PALIPERIDONE
     Indication: BIPOLAR DISORDER
     Route: 048
     Dates: start: 2012
  2. INVEGA TRINZA [Suspect]
     Active Substance: PALIPERIDONE PALMITATE
     Indication: BORDERLINE PERSONALITY DISORDER
     Route: 030
  3. PALIPERIDONE. [Suspect]
     Active Substance: PALIPERIDONE
     Indication: ATTENTION DEFICIT/HYPERACTIVITY DISORDER
     Route: 048
  4. INVEGA [Suspect]
     Active Substance: PALIPERIDONE
     Indication: ATTENTION DEFICIT/HYPERACTIVITY DISORDER
     Route: 048
     Dates: start: 2012
  5. INVEGA SUSTENNA [Suspect]
     Active Substance: PALIPERIDONE PALMITATE
     Indication: ATTENTION DEFICIT/HYPERACTIVITY DISORDER
     Route: 030
  6. INVEGA SUSTENNA [Suspect]
     Active Substance: PALIPERIDONE PALMITATE
     Indication: BIPOLAR DISORDER
     Route: 030
  7. INVEGA TRINZA [Suspect]
     Active Substance: PALIPERIDONE PALMITATE
     Indication: BIPOLAR DISORDER
     Route: 030
  8. PALIPERIDONE. [Suspect]
     Active Substance: PALIPERIDONE
     Indication: BIPOLAR DISORDER
     Route: 048
  9. INVEGA TRINZA [Suspect]
     Active Substance: PALIPERIDONE PALMITATE
     Indication: ATTENTION DEFICIT/HYPERACTIVITY DISORDER
     Route: 030
  10. PALIPERIDONE. [Suspect]
     Active Substance: PALIPERIDONE
     Indication: BORDERLINE PERSONALITY DISORDER
     Route: 048
  11. INVEGA [Suspect]
     Active Substance: PALIPERIDONE
     Indication: BORDERLINE PERSONALITY DISORDER
     Route: 048
     Dates: start: 2012
  12. INVEGA SUSTENNA [Suspect]
     Active Substance: PALIPERIDONE PALMITATE
     Indication: BORDERLINE PERSONALITY DISORDER
     Route: 030
  13. KLONOPIN [Concomitant]
     Active Substance: CLONAZEPAM
     Indication: ANXIETY
     Route: 065

REACTIONS (6)
  - Off label use [Unknown]
  - Product use in unapproved indication [Unknown]
  - Weight increased [Not Recovered/Not Resolved]
  - Inappropriate schedule of drug administration [Unknown]
  - Nonspecific reaction [Unknown]
  - Self-injurious ideation [Unknown]

NARRATIVE: CASE EVENT DATE: 2012
